FAERS Safety Report 18550732 (Version 1)
Quarter: 2020Q4

REPORT INFORMATION
  Report Type: Spontaneous
  Country: US (occurrence: US)
  Receive Date: 20201126
  Receipt Date: 20201126
  Transmission Date: 20210114
  Serious: No
  Sender: FDA-Public Use
  Company Number: US-PFIZER INC-2020466216

PATIENT
  Sex: Female

DRUGS (3)
  1. MEDICOR (ADENOSINE\CYTIDINE\GUANOSINE\THYMIDINE\URIDINE) [Suspect]
     Active Substance: DIETARY SUPPLEMENT
     Dosage: UNK
  2. CRESTOR [Suspect]
     Active Substance: ROSUVASTATIN CALCIUM
     Dosage: UNK
  3. LIPITOR [Suspect]
     Active Substance: ATORVASTATIN CALCIUM
     Dosage: UNK

REACTIONS (2)
  - Muscle spasms [Unknown]
  - Urticaria [Unknown]
